FAERS Safety Report 12591159 (Version 2)
Quarter: 2016Q3

REPORT INFORMATION
  Report Type: Spontaneous
  Country: US (occurrence: US)
  Receive Date: 20160726
  Receipt Date: 20160727
  Transmission Date: 20161109
  Serious: No
  Sender: FDA-Public Use
  Company Number: US-UNITED THERAPEUTICS-UNT-2016-004486

PATIENT
  Age: 48 Year
  Sex: Female
  Weight: 60.32 kg

DRUGS (4)
  1. REMODULIN [Suspect]
     Active Substance: TREPROSTINIL
     Dosage: UNK
     Route: 058
  2. LETAIRIS [Concomitant]
     Active Substance: AMBRISENTAN
     Indication: PRODUCT USED FOR UNKNOWN INDICATION
  3. SILDENAFIL. [Concomitant]
     Active Substance: SILDENAFIL
     Indication: PRODUCT USED FOR UNKNOWN INDICATION
  4. REMODULIN [Suspect]
     Active Substance: TREPROSTINIL
     Indication: PULMONARY HYPERTENSION
     Dosage: 0.031 ?G/KG, CONTINUING
     Route: 058
     Dates: start: 20160219

REACTIONS (18)
  - Muscle spasms [Unknown]
  - Infusion site erythema [Unknown]
  - Infusion site reaction [Not Recovered/Not Resolved]
  - Malaise [Unknown]
  - Blood pressure increased [Unknown]
  - Pain [Unknown]
  - Nausea [Unknown]
  - Infusion site pain [Not Recovered/Not Resolved]
  - Fatigue [Unknown]
  - Pain in extremity [Unknown]
  - Retching [Unknown]
  - Infusion site oedema [Unknown]
  - Back pain [Unknown]
  - Dry mouth [Unknown]
  - Tachycardia [Unknown]
  - Infusion site nodule [Unknown]
  - Frustration tolerance decreased [Unknown]
  - Dyspnoea [Unknown]

NARRATIVE: CASE EVENT DATE: 20160219
